FAERS Safety Report 21500774 (Version 2)
Quarter: 2022Q4

REPORT INFORMATION
  Report Type: Spontaneous
  Country: US (occurrence: US)
  Receive Date: 20221025
  Receipt Date: 20221214
  Transmission Date: 20230113
  Serious: No
  Sender: FDA-Public Use
  Company Number: US-LEO Pharma-346100

PATIENT
  Age: 67 Year
  Sex: Male

DRUGS (20)
  1. DOCUSATE SODIUM [Concomitant]
     Active Substance: DOCUSATE SODIUM
     Indication: Constipation
  2. DIAZEPAM [Concomitant]
     Active Substance: DIAZEPAM
     Indication: Pain
  3. DIAZEPAM [Concomitant]
     Active Substance: DIAZEPAM
     Indication: Muscle spasms
  4. olapatadine [Concomitant]
     Indication: Product used for unknown indication
  5. PRIMIDONE [Concomitant]
     Active Substance: PRIMIDONE
     Indication: Seizure
  6. Q-Nasal Spray [Concomitant]
     Indication: Hypersensitivity
  7. CLONAZEPAM [Concomitant]
     Active Substance: CLONAZEPAM
     Indication: Sleep disorder
  8. CLONAZEPAM [Concomitant]
     Active Substance: CLONAZEPAM
     Indication: Pain
  9. BYSTOLIC [Concomitant]
     Active Substance: NEBIVOLOL HYDROCHLORIDE
     Indication: Hypertension
  10. COENZYME Q10 [Concomitant]
     Active Substance: DIETARY SUPPLEMENT\UBIDECARENONE
     Indication: Product used for unknown indication
  11. ADBRY [Suspect]
     Active Substance: TRALOKINUMAB-LDRM
     Indication: Dermatitis atopic
     Dosage: 4 INJECTIONS FOR THE INITIAL DOSE?STOP DATE:END OF AUGUST OR BEGINNING OF SEPTEMBER
     Route: 058
     Dates: start: 202205
  12. ADBRY [Suspect]
     Active Substance: TRALOKINUMAB-LDRM
     Indication: Dermatitis atopic
     Dosage: 4 INJECTIONS FOR THE INITIAL DOSE?STOP DATE:END OF AUGUST OR BEGINNING OF SEPTEMBER
     Route: 058
     Dates: start: 202205
  13. ADBRY [Suspect]
     Active Substance: TRALOKINUMAB-LDRM
     Indication: Dermatitis atopic
     Dosage: 2 INJECTIONS EVERY TWO WEEKS?STOP DATE: END OF AUGUST OR BEGINNING OF SEPTEMBER END
     Route: 058
  14. ADBRY [Suspect]
     Active Substance: TRALOKINUMAB-LDRM
     Indication: Dermatitis atopic
     Dosage: 2 INJECTIONS EVERY TWO WEEKS?STOP DATE: END OF AUGUST OR BEGINNING OF SEPTEMBER END
     Route: 058
  15. ADBRY [Suspect]
     Active Substance: TRALOKINUMAB-LDRM
     Indication: Dermatitis atopic
     Dosage: 4 INJECTIONS FOR THE INITIAL DOSE?STOP DATE:END OF AUGUST OR BEGINNING OF SEPTEMBER
     Route: 058
     Dates: start: 202205
  16. ADBRY [Suspect]
     Active Substance: TRALOKINUMAB-LDRM
     Indication: Dermatitis atopic
     Dosage: 4 INJECTIONS FOR THE INITIAL DOSE?STOP DATE:END OF AUGUST OR BEGINNING OF SEPTEMBER
     Route: 058
     Dates: start: 202205
  17. ADBRY [Suspect]
     Active Substance: TRALOKINUMAB-LDRM
     Indication: Dermatitis atopic
     Dosage: 2 INJECTIONS EVERY TWO WEEKS?STOP DATE: END OF AUGUST OR BEGINNING OF SEPTEMBER END
     Route: 058
  18. ADBRY [Suspect]
     Active Substance: TRALOKINUMAB-LDRM
     Indication: Dermatitis atopic
     Dosage: 2 INJECTIONS EVERY TWO WEEKS?STOP DATE: END OF AUGUST OR BEGINNING OF SEPTEMBER END
     Route: 058
  19. ASPIRIN [Concomitant]
     Active Substance: ASPIRIN
     Indication: Product used for unknown indication
  20. OLMESARTAN [Concomitant]
     Active Substance: OLMESARTAN
     Indication: Hypertension

REACTIONS (1)
  - Eczema [Not Recovered/Not Resolved]

NARRATIVE: CASE EVENT DATE: 20221009
